FAERS Safety Report 9471748 (Version 3)
Quarter: 2013Q4

REPORT INFORMATION
  Report Type: Spontaneous
  Country: CA (occurrence: CA)
  Receive Date: 20130822
  Receipt Date: 20131024
  Transmission Date: 20140711
  Serious: Yes (Hospitalization)
  Sender: FDA-Public Use
  Company Number: CA-GLAXOSMITHKLINE-A1037398A

PATIENT
  Age: 70 Year
  Sex: Female
  Weight: 50 kg

DRUGS (8)
  1. ADVAIR [Suspect]
     Indication: CHRONIC OBSTRUCTIVE PULMONARY DISEASE
     Dosage: 1PUFF TWICE PER DAY
     Route: 055
     Dates: start: 2008
  2. VENTOLIN [Concomitant]
     Route: 055
  3. ATROVENT [Concomitant]
  4. ZOPICLONE [Concomitant]
     Dosage: 5MG PER DAY
  5. CITALOPRAM [Concomitant]
     Dosage: 5MG PER DAY
  6. PREDNISONE [Concomitant]
     Dosage: 5MG PER DAY
  7. SPIRIVA [Concomitant]
  8. SINGULAIR [Concomitant]

REACTIONS (4)
  - Lung infection [Recovered/Resolved]
  - Dyspnoea [Recovered/Resolved]
  - Muscle spasms [Not Recovered/Not Resolved]
  - Anxiety [Not Recovered/Not Resolved]
